FAERS Safety Report 19890796 (Version 2)
Quarter: 2021Q4

REPORT INFORMATION
  Report Type: Spontaneous
  Country: US (occurrence: US)
  Receive Date: 20210927
  Receipt Date: 20211029
  Transmission Date: 20220304
  Serious: Yes (Other)
  Sender: FDA-Public Use
  Company Number: US-TEVA-2021-US-1960078

PATIENT
  Age: 68 Year
  Sex: Male

DRUGS (10)
  1. AUSTEDO [Suspect]
     Active Substance: DEUTETRABENAZINE
     Route: 065
  2. DESVENLAFAXINE [Concomitant]
     Active Substance: DESVENLAFAXINE
  3. ATENOLOL [Concomitant]
     Active Substance: ATENOLOL
  4. LOVASTATIN [Concomitant]
     Active Substance: LOVASTATIN
  5. VRAYLAR [Concomitant]
     Active Substance: CARIPRAZINE
  6. AMANTADINE. [Concomitant]
     Active Substance: AMANTADINE HYDROCHLORIDE
  7. INGREZZA [Concomitant]
     Active Substance: VALBENAZINE
  8. LEVOTHYROXINE [Concomitant]
     Active Substance: LEVOTHYROXINE
  9. OMEPRAZOLE [Concomitant]
     Active Substance: OMEPRAZOLE
  10. EBASTINE [Concomitant]
     Active Substance: EBASTINE

REACTIONS (1)
  - Suicidal ideation [Not Recovered/Not Resolved]

NARRATIVE: CASE EVENT DATE: 20200101
